FAERS Safety Report 9892843 (Version 1)
Quarter: 2014Q1

REPORT INFORMATION
  Report Type: Spontaneous
  Country: BR (occurrence: BR)
  Receive Date: 20140213
  Receipt Date: 20140213
  Transmission Date: 20141002
  Serious: Yes (Disabling, Other)
  Sender: FDA-Public Use
  Company Number: BR-ROCHE-1344451

PATIENT
  Sex: Female
  Weight: 73 kg

DRUGS (8)
  1. RIVOTRIL [Suspect]
     Indication: EPILEPSY
     Dosage: ONE TABLET AND HALF OF 2 MG
     Route: 065
     Dates: start: 1985
  2. RIVOTRIL [Suspect]
     Indication: PANIC DISORDER
     Route: 065
  3. RIVOTRIL [Suspect]
     Indication: ANXIETY
     Route: 065
  4. AMPLICTIL [Suspect]
     Indication: ANXIETY
     Dosage: IN THE EVENINGS
     Route: 065
     Dates: start: 1977
  5. TEGRETOL [Concomitant]
     Indication: ANXIETY
     Route: 065
     Dates: start: 1977
  6. TEGRETOL [Concomitant]
     Indication: EPILEPSY
  7. SYNTHROID [Concomitant]
     Indication: HYPOTHYROIDISM
     Dosage: AT FASTING PERIOD
     Route: 065
     Dates: start: 1984
  8. LOSARTAN [Concomitant]
     Indication: HYPERTENSION
     Route: 065
     Dates: start: 2010

REACTIONS (13)
  - Panic disorder [Unknown]
  - Anxiety [Unknown]
  - Tremor [Unknown]
  - Suicidal ideation [Unknown]
  - Drug ineffective [Unknown]
  - Depression [Unknown]
  - Unevaluable event [Unknown]
  - Hallucination, visual [Recovered/Resolved]
  - Hallucination, auditory [Recovered/Resolved]
  - Hypertension [Unknown]
  - Blindness [Unknown]
  - Hyperthyroidism [Unknown]
  - Spinal disorder [Unknown]
